APPROVED DRUG PRODUCT: RUBRACA
Active Ingredient: RUCAPARIB CAMSYLATE
Strength: EQ 250MG BASE
Dosage Form/Route: TABLET;ORAL
Application: N209115 | Product #003
Applicant: PHARMAAND GMBH
Approved: May 1, 2017 | RLD: Yes | RS: No | Type: RX

PATENTS:
Patent 8143241 | Expires: Aug 12, 2027
Patent 8143241 | Expires: Aug 12, 2027
Patent 9861638 | Expires: Feb 10, 2031
Patent 8859562 | Expires: Aug 4, 2031
Patent 10130636 | Expires: Aug 17, 2035
Patent 9861638 | Expires: Feb 10, 2031
Patent 8071579 | Expires: Aug 12, 2027
Patent 8859562 | Expires: Aug 4, 2031
Patent 8071579 | Expires: Aug 12, 2027
Patent 10130636 | Expires: Aug 17, 2035
Patent 8071579 | Expires: Aug 12, 2027
Patent 8143241 | Expires: Aug 12, 2027
Patent 8859562 | Expires: Aug 4, 2031
Patent 10130636 | Expires: Aug 17, 2035
Patent 10130636 | Expires: Aug 17, 2035
Patent 9045487 | Expires: Feb 10, 2031
Patent 10278974 | Expires: Feb 10, 2031
Patent 9987285 | Expires: Aug 17, 2035
Patent 8754072 | Expires: Feb 10, 2031